FAERS Safety Report 23468094 (Version 2)
Quarter: 2024Q1

REPORT INFORMATION
  Report Type: Spontaneous
  Country: DE (occurrence: DE)
  Receive Date: 20240201
  Receipt Date: 20240314
  Transmission Date: 20240410
  Serious: Yes (Other)
  Sender: FDA-Public Use
  Company Number: DE-002147023-NVSC2024DE019330

PATIENT
  Age: 48 Year
  Sex: Female
  Weight: 59 kg

DRUGS (4)
  1. AIMOVIG [Suspect]
     Active Substance: ERENUMAB-AOOE
     Indication: Migraine
     Dosage: 70 MG, QMO (1X MONTHLY)
     Route: 058
     Dates: start: 202310, end: 202401
  2. LEVOTHYROXINE [Concomitant]
     Active Substance: LEVOTHYROXINE\LEVOTHYROXINE SODIUM
     Indication: Product used for unknown indication
     Dosage: 150 MICROGRAM
     Route: 048
  3. PROGESTERONE [Concomitant]
     Active Substance: PROGESTERONE
     Indication: Product used for unknown indication
     Dosage: 100 MILLIGRAM
     Route: 048
  4. ESTRADIOL [Concomitant]
     Active Substance: ESTRADIOL
     Indication: Product used for unknown indication
     Dosage: UNK (1 PUFF, DAILY)
     Route: 065

REACTIONS (1)
  - Retinal white dots syndrome [Not Recovered/Not Resolved]

NARRATIVE: CASE EVENT DATE: 20240113
